FAERS Safety Report 11102507 (Version 5)
Quarter: 2016Q3

REPORT INFORMATION
  Report Type: Spontaneous
  Country: GB (occurrence: GB)
  Receive Date: 20150511
  Receipt Date: 20160920
  Transmission Date: 20161109
  Serious: Yes (Hospitalization, Disabling)
  Sender: FDA-Public Use
  Company Number: GB-ROCHE-1575419

PATIENT
  Age: 14 Year
  Sex: Female
  Weight: 55.4 kg

DRUGS (6)
  1. THEOPHYLLINE [Concomitant]
     Active Substance: THEOPHYLLINE ANHYDROUS
     Indication: ASTHMA
     Dosage: 250 MG, QD
     Route: 048
     Dates: start: 201406
  2. SERENACE [Concomitant]
     Active Substance: HALOPERIDOL
     Indication: ASTHMA
     Dosage: 500 OT
     Route: 055
     Dates: start: 201406
  3. MONTELUKAST [Concomitant]
     Active Substance: MONTELUKAST SODIUM
     Indication: ASTHMA
     Dosage: 10 MG, QD
     Route: 048
     Dates: start: 201406
  4. FLIXONASE [Concomitant]
     Active Substance: FLUTICASONE PROPIONATE
     Indication: ASTHMA
     Dosage: 100 OT
     Route: 055
     Dates: start: 201406
  5. OMALIZUMAB [Suspect]
     Active Substance: OMALIZUMAB
     Indication: PRODUCT USED FOR UNKNOWN INDICATION
     Dosage: 450 MG
     Route: 058
     Dates: start: 20140918
  6. CETRIZINE [Concomitant]
     Active Substance: CETIRIZINE HYDROCHLORIDE
     Indication: ECZEMA
     Dosage: 10 MG, QD
     Route: 048
     Dates: start: 201409

REACTIONS (5)
  - Injection site reaction [Recovered/Resolved]
  - Synovial disorder [Recovered/Resolved]
  - Joint effusion [Recovered/Resolved with Sequelae]
  - Cold urticaria [Recovering/Resolving]
  - Arthralgia [Recovered/Resolved]

NARRATIVE: CASE EVENT DATE: 20140918
